FAERS Safety Report 5305309-5 (Version None)
Quarter: 2007Q2

REPORT INFORMATION
  Report Type: 
  Country: None (occurrence: None)
  Receive Date: 20070424
  Receipt Date: 20070411
  Transmission Date: 20071010
  Serious: Yes (Other)
  Sender: FDA-Public Use
  Company Number: PHNU2007DE01444

PATIENT
  Age: 64 Year
  Sex: Female
  Weight: 108 kg

DRUGS (21)
  1. FEMARA [Suspect]
     Indication: BREAST CANCER
     Dosage: 2.5 MG
     Route: 048
     Dates: start: 20061010, end: 20070315
  2. FUROSEMIDE [Concomitant]
     Dosage: 1 DF, QD
     Route: 048
  3. DECORTIN [Concomitant]
     Dosage: 1 DF, QD
     Route: 048
  4. DOXEPIN HCL [Concomitant]
     Dosage: 1 DF, QD
     Route: 048
  5. ACETYLSALICYLIC ACID SRT [Concomitant]
     Dosage: 1 DF, QD
     Route: 048
  6. THEOPHYLLINE [Concomitant]
     Dosage: 1 DF, QD
     Route: 048
  7. EFEROX [Concomitant]
     Dosage: 1 DF, QD
     Route: 048
  8. MORPHINE [Concomitant]
     Dosage: 10 MG, QD
     Route: 048
  9. FLUPIRTINE MALEATE [Concomitant]
     Dosage: 1 DF, QD
     Route: 048
  10. FENTANYL [Concomitant]
     Dosage: 1 DF, QD
     Route: 062
  11. AMILORETIC [Concomitant]
     Route: 065
  12. METOCLOPRAMIDE [Concomitant]
     Route: 048
  13. LACTULOSE [Concomitant]
     Route: 048
  14. URSODIOL [Concomitant]
     Route: 048
  15. CLARITHROMYCIN [Concomitant]
     Route: 048
  16. METRONIDAZOLE [Concomitant]
     Route: 048
  17. PANTOPRAZOLE [Concomitant]
     Route: 048
  18. VALORON [Concomitant]
  19. LYRICA [Concomitant]
  20. OSSOFORTIN FORTE [Concomitant]
  21. OMEPRAZOLE [Concomitant]

REACTIONS (1)
  - HEPATITIS [None]
